FAERS Safety Report 15154278 (Version 1)
Quarter: 2018Q3

REPORT INFORMATION
  Report Type: Spontaneous
  Country: US (occurrence: US)
  Receive Date: 20180620
  Receipt Date: 20180620
  Transmission Date: 20181010
  Serious: No
  Sender: FDA-Public Use
  Company Number: None

PATIENT
  Age: 64 Year
  Sex: Male

DRUGS (1)
  1. LISINOPRIL. [Suspect]
     Active Substance: LISINOPRIL
     Route: 048
     Dates: start: 20180608, end: 20180618

REACTIONS (4)
  - Counterfeit product administered [None]
  - Dizziness [None]
  - Loss of consciousness [None]
  - Drug ineffective [None]

NARRATIVE: CASE EVENT DATE: 20180608
